FAERS Safety Report 4788814-X (Version None)
Quarter: 2005Q4

REPORT INFORMATION
  Report Type: 
  Country: None (occurrence: None)
  Receive Date: 20051004
  Receipt Date: 20050921
  Transmission Date: 20060501
  Serious: Yes (Other)
  Sender: FDA-Public Use
  Company Number: 2005127967

PATIENT
  Age: 63 Year
  Sex: Male
  Weight: 97 kg

DRUGS (8)
  1. GENOTROPIN [Suspect]
     Indication: HYPOPITUITARISM
     Dosage: 0.3 MG (0.3 MG, DAILY), SUBCUTANEOUS
     Route: 058
     Dates: start: 20040914, end: 20050821
  2. TAMSULOSIN HCL [Concomitant]
  3. HYZAAR [Concomitant]
  4. HYDROCORTISONE [Concomitant]
  5. TESTOSTERONE [Concomitant]
  6. LEVOTHYROXINE SODIUM [Concomitant]
  7. CARBASALATE CALCIUM (CARBASALATE CALCIUM) [Concomitant]
  8. SIMVASTTIN (SIMVASTATIN) [Concomitant]

REACTIONS (3)
  - DYSURIA [None]
  - PROSTATE CANCER STAGE II [None]
  - PROSTATIC SPECIFIC ANTIGEN INCREASED [None]
